FAERS Safety Report 7693962-0 (Version None)
Quarter: 2011Q3

REPORT INFORMATION
  Report Type: 
  Country: None (occurrence: None)
  Receive Date: 20110819
  Receipt Date: 20110808
  Transmission Date: 20111222
  Serious: Yes (Hospitalization)
  Sender: FDA-Public Use
  Company Number: MX-SANOFI-AVENTIS-2011SA046437

PATIENT
  Age: 78 Year
  Sex: Male
  Weight: 72 kg

DRUGS (9)
  1. FUROSEMIDE [Concomitant]
  2. ASPIRIN [Concomitant]
  3. PRASUGREL [Concomitant]
  4. LOSARTAN [Concomitant]
  5. METFORMIN HCL [Concomitant]
  6. DIAZEPAM [Concomitant]
  7. DRONEDARONE HCL [Suspect]
     Indication: ATRIAL FIBRILLATION
     Route: 048
     Dates: start: 20110518, end: 20110707
  8. AMLODIPINE [Concomitant]
  9. ATORVASTATIN [Concomitant]

REACTIONS (1)
  - SYNCOPE [None]
